FAERS Safety Report 16217046 (Version 2)
Quarter: 2019Q2

REPORT INFORMATION
  Report Type: Spontaneous
  Country: US (occurrence: US)
  Receive Date: 20190419
  Receipt Date: 20190501
  Transmission Date: 20190711
  Serious: No
  Sender: FDA-Public Use
  Company Number: PHHY2019US081228

PATIENT

DRUGS (1)
  1. BSS [Suspect]
     Active Substance: CALCIUM CHLORIDE\MAGNESIUM CHLORIDE\POTASSIUM CHLORIDE\SODIUM ACETATE\SODIUM CHLORIDE\SODIUM CITRATE
     Indication: EYE IRRIGATION
     Route: 065

REACTIONS (2)
  - Product leakage [Unknown]
  - Poor quality product administered [Unknown]
